FAERS Safety Report 24351053 (Version 1)
Quarter: 2024Q3

REPORT INFORMATION
  Report Type: Report from Study
  Country: IT (occurrence: IT)
  Receive Date: 20240923
  Receipt Date: 20240923
  Transmission Date: 20241016
  Serious: No
  Sender: ROCHE
  Company Number: IT-ROCHE-2608878

PATIENT
  Age: 37 Year
  Sex: Female
  Weight: 64.0 kg

DRUGS (48)
  1. HERCEPTIN [Suspect]
     Active Substance: TRASTUZUMAB
     Indication: HER2 positive breast cancer
     Dosage: MOST RECENT DOSE PRIOR TO THE EVENT: 09/JUL/2018
     Route: 041
     Dates: start: 20161011, end: 20161011
  2. HERCEPTIN [Suspect]
     Active Substance: TRASTUZUMAB
     Route: 041
     Dates: start: 20191220, end: 20200505
  3. HERCEPTIN [Suspect]
     Active Substance: TRASTUZUMAB
     Route: 041
     Dates: start: 20161102, end: 20171020
  4. TRIPTORELIN [Suspect]
     Active Substance: TRIPTORELIN
     Indication: HER2 positive breast cancer
     Route: 030
     Dates: start: 20170224, end: 20180703
  5. TAXOTERE [Suspect]
     Active Substance: DOCETAXEL
     Indication: HER2 positive breast cancer
     Route: 042
     Dates: start: 20161011, end: 20170113
  6. XELODA [Suspect]
     Active Substance: CAPECITABINE
     Indication: HER2 positive breast cancer
     Route: 048
     Dates: start: 20180312, end: 20180401
  7. XELODA [Suspect]
     Active Substance: CAPECITABINE
     Route: 048
     Dates: start: 20180417, end: 20180430
  8. XELODA [Suspect]
     Active Substance: CAPECITABINE
     Route: 048
     Dates: start: 20180508, end: 20180521
  9. XELODA [Suspect]
     Active Substance: CAPECITABINE
     Route: 048
     Dates: start: 20180529, end: 20180611
  10. XELODA [Suspect]
     Active Substance: CAPECITABINE
     Route: 048
     Dates: start: 20180619, end: 20180703
  11. FASLODEX [Suspect]
     Active Substance: FULVESTRANT
     Indication: HER2 positive breast cancer
     Route: 030
     Dates: start: 20181115, end: 20191001
  12. FASLODEX [Suspect]
     Active Substance: FULVESTRANT
     Route: 042
     Dates: start: 20190311, end: 20191002
  13. PALBOCICLIB [Suspect]
     Active Substance: PALBOCICLIB
     Indication: HER2 positive breast cancer
     Route: 048
     Dates: start: 20181115, end: 20191001
  14. EVEROLIMUS [Suspect]
     Active Substance: EVEROLIMUS
     Indication: HER2 positive breast cancer
     Route: 048
     Dates: start: 20191002, end: 20191127
  15. NAVELBINE [Suspect]
     Active Substance: VINORELBINE TARTRATE
     Indication: HER2 positive breast cancer
     Dosage: OTHER
     Route: 048
     Dates: start: 20180709, end: 20181115
  16. PACLITAXEL [Suspect]
     Active Substance: PACLITAXEL
     Indication: HER2 positive breast cancer
     Route: 042
     Dates: start: 20191220, end: 20200505
  17. PERJETA [Suspect]
     Active Substance: PERTUZUMAB
     Indication: HER2 positive breast cancer
     Dosage: MOST RECENT DOSE PRIOR TO THE EVENT: 02/NOV/2016
     Route: 042
     Dates: start: 20161011, end: 20161011
  18. PERJETA [Suspect]
     Active Substance: PERTUZUMAB
     Route: 042
     Dates: start: 20161102, end: 20171020
  19. EXEMESTANE [Suspect]
     Active Substance: EXEMESTANE
     Indication: HER2 positive breast cancer
     Dosage: MOST RECENT DOSE PRIOR TO THE EVENT: 02/OCT/2019
     Route: 048
     Dates: start: 20170224, end: 20171113
  20. EXEMESTANE [Suspect]
     Active Substance: EXEMESTANE
     Route: 048
     Dates: start: 20191002, end: 20191219
  21. KADCYLA [Suspect]
     Active Substance: ADO-TRASTUZUMAB EMTANSINE
     Indication: HER2 positive breast cancer
     Route: 042
     Dates: start: 20171113, end: 20180124
  22. TYKERB [Suspect]
     Active Substance: LAPATINIB DITOSYLATE
     Indication: HER2 positive breast cancer
     Route: 048
     Dates: start: 20180312, end: 20180708
  23. HERCEPTIN [Suspect]
     Active Substance: TRASTUZUMAB
     Indication: HER2 positive breast cancer
     Route: 058
     Dates: start: 20180709, end: 20181015
  24. LANSOPRAZOLE [Concomitant]
     Active Substance: LANSOPRAZOLE
     Indication: Prophylaxis
     Route: 048
     Dates: end: 20180312
  25. NADROPARIN CALCIUM [Concomitant]
     Active Substance: NADROPARIN CALCIUM
     Indication: Prophylaxis
     Route: 058
     Dates: end: 20170613
  26. LEVOFLOXACIN [Concomitant]
     Active Substance: LEVOFLOXACIN
     Indication: Prophylaxis
     Route: 048
     Dates: start: 20170320, end: 20170330
  27. LASIX [Concomitant]
     Active Substance: FUROSEMIDE
     Dosage: EVERY DAY FOR FIVE DAYS
     Route: 048
     Dates: start: 20170502
  28. LASIX [Concomitant]
     Active Substance: FUROSEMIDE
     Route: 048
     Dates: start: 20170502, end: 20170613
  29. LASIX [Concomitant]
     Active Substance: FUROSEMIDE
     Route: 048
     Dates: start: 20170713, end: 20190115
  30. TRIPTORELINA [Concomitant]
     Indication: Prophylaxis
     Dosage: EVERY 28 DAYS
     Route: 030
     Dates: end: 20180719
  31. ASPIRIN [Concomitant]
     Active Substance: ASPIRIN
     Indication: Prophylaxis
     Route: 048
     Dates: start: 20170613, end: 20180103
  32. ONDANSETRON [Concomitant]
     Active Substance: ONDANSETRON
     Indication: Premedication
     Dosage: EVERY 21 DAYS
     Route: 042
     Dates: end: 20170203
  33. RANITIDINE [Concomitant]
     Active Substance: RANITIDINE
     Indication: Premedication
     Dosage: EVERY 21 DAYS
     Route: 042
     Dates: start: 20170224
  34. RANITIDINE [Concomitant]
     Active Substance: RANITIDINE
     Dosage: EVERY 21 DAYS
     Route: 042
     Dates: start: 20170907, end: 20171020
  35. RANITIDINE [Concomitant]
     Active Substance: RANITIDINE
     Dosage: EVERY 21 DAYS
     Route: 042
     Dates: start: 20171113, end: 20180124
  36. METHYLPREDNISOLONE [Concomitant]
     Active Substance: METHYLPREDNISOLONE
     Indication: Premedication
     Dosage: EVERY 21 DAYS
     Route: 042
     Dates: start: 20170224
  37. BETAMETHASONE [Concomitant]
     Active Substance: BETAMETHASONE
     Indication: Premedication
     Dosage: EVERY 21 DAYS
     Route: 042
     Dates: start: 20170907, end: 20171020
  38. METOCLOPRAMIDE HYDROCHLORIDE [Concomitant]
     Active Substance: METOCLOPRAMIDE HYDROCHLORIDE
     Indication: Prophylaxis
     Route: 048
     Dates: start: 20171113, end: 20180719
  39. METOCLOPRAMIDE HYDROCHLORIDE [Concomitant]
     Active Substance: METOCLOPRAMIDE HYDROCHLORIDE
     Route: 048
     Dates: start: 20180719, end: 20181114
  40. ONDANSETRON [Concomitant]
     Active Substance: ONDANSETRON
     Indication: Premedication
     Dosage: EVERY 21 DAYS
     Route: 042
     Dates: start: 20171113, end: 20180124
  41. DEXAMETHASONE [Concomitant]
     Active Substance: DEXAMETHASONE
     Indication: Premedication
     Dosage: EVERY 21 DAYS
     Route: 042
     Dates: start: 20171113, end: 20180124
  42. DIETARY SUPPLEMENT\HERBALS\MILK THISTLE [Concomitant]
     Active Substance: MILK THISTLE
     Indication: Prophylaxis
     Route: 048
     Dates: start: 20180124, end: 20180215
  43. RANIBEN (ITALY) [Concomitant]
     Indication: Prophylaxis
     Route: 048
     Dates: start: 20180312, end: 20190115
  44. ENOXAPARIN SODIUM [Concomitant]
     Active Substance: ENOXAPARIN SODIUM
     Indication: Deep vein thrombosis
     Dates: start: 20171212, end: 20180312
  45. SPASMEX (ITALY) [Concomitant]
     Indication: Prophylaxis
     Route: 030
     Dates: start: 20180719, end: 20181114
  46. ZOMETA [Concomitant]
     Active Substance: ZOLEDRONIC ACID
     Indication: Prophylaxis
     Route: 042
     Dates: start: 20190311, end: 20200811
  47. ZOLEDRONIC ACID [Concomitant]
     Active Substance: ZOLEDRONIC ACID
     Indication: Prophylaxis
     Route: 042
     Dates: start: 20170203, end: 20180809
  48. ZOLEDRONIC ACID [Concomitant]
     Active Substance: ZOLEDRONIC ACID
     Route: 042
     Dates: start: 20180830, end: 20191001

REACTIONS (1)
  - Pyrexia [Recovered/Resolved]

NARRATIVE: CASE EVENT DATE: 20200315
